FAERS Safety Report 25481409 (Version 2)
Quarter: 2025Q3

REPORT INFORMATION
  Report Type: Spontaneous
  Country: JP (occurrence: JP)
  Receive Date: 20250626
  Receipt Date: 20250704
  Transmission Date: 20251020
  Serious: No
  Sender: AMGEN
  Company Number: JP-KYOWAKIRIN-2025KK011870

PATIENT

DRUGS (1)
  1. DARBEPOETIN ALFA [Suspect]
     Active Substance: DARBEPOETIN ALFA
     Indication: Product used for unknown indication
     Dosage: UNK, 1X/2 WEEKS
     Route: 065

REACTIONS (1)
  - No adverse event [Unknown]
